FAERS Safety Report 19869000 (Version 8)
Quarter: 2022Q4

REPORT INFORMATION
  Report Type: Other
  Country: CO (occurrence: CO)
  Receive Date: 20210922
  Receipt Date: 20221019
  Transmission Date: 20230112
  Serious: Yes (Hospitalization, Other)
  Sender: FDA-Public Use
  Company Number: CO-002147023-NVSC2021CO201163

PATIENT
  Age: 47 Year
  Sex: Female
  Weight: 96 kg

DRUGS (5)
  1. XOLAIR [Suspect]
     Active Substance: OMALIZUMAB
     Indication: Idiopathic urticaria
     Route: 058
     Dates: start: 20210910
  2. XOLAIR [Suspect]
     Active Substance: OMALIZUMAB
     Route: 058
     Dates: start: 20211008
  3. XOLAIR [Suspect]
     Active Substance: OMALIZUMAB
     Route: 058
  4. XOLAIR [Suspect]
     Active Substance: OMALIZUMAB
     Route: 058
     Dates: start: 20220524
  5. BILASTINE [Concomitant]
     Active Substance: BILASTINE
     Indication: Idiopathic urticaria
     Dosage: 10 MG, BID (EVERY 12 HOURS)
     Route: 065

REACTIONS (16)
  - Pruritus [Unknown]
  - Hypersensitivity [Unknown]
  - Hypertensive crisis [Unknown]
  - Abdominal pain upper [Recovering/Resolving]
  - Chest pain [Not Recovered/Not Resolved]
  - Crying [Unknown]
  - Vomiting [Recovering/Resolving]
  - Asthenia [Recovered/Resolved]
  - Skin discolouration [Unknown]
  - Skin burning sensation [Recovering/Resolving]
  - Blood pressure increased [Unknown]
  - Dizziness [Recovered/Resolved]
  - Nausea [Recovering/Resolving]
  - Headache [Recovering/Resolving]
  - Urticaria [Unknown]
  - Rash [Unknown]

NARRATIVE: CASE EVENT DATE: 20210910
